FAERS Safety Report 23686251 (Version 1)
Quarter: 2024Q1

REPORT INFORMATION
  Report Type: Report from Study
  Country: GB (occurrence: GB)
  Receive Date: 20240329
  Receipt Date: 20240329
  Transmission Date: 20240409
  Serious: Yes (Other)
  Sender: FDA-Public Use
  Company Number: GB-AMGEN-GBRSL2024060949

PATIENT
  Age: 39 Year
  Sex: Female

DRUGS (1)
  1. ADALIMUMAB [Suspect]
     Active Substance: ADALIMUMAB\ISOPROPYL ALCOHOL
     Indication: Psoriatic arthropathy
     Dosage: 40 MILLIGRAM, Q2WK
     Route: 065

REACTIONS (3)
  - Immunosuppression [Unknown]
  - Surgery [Unknown]
  - Precancerous cells present [Unknown]

NARRATIVE: CASE EVENT DATE: 20231101
